FAERS Safety Report 24448301 (Version 1)
Quarter: 2024Q4

REPORT INFORMATION
  Report Type: Report from Study
  Country: US (occurrence: US)
  Receive Date: 20241017
  Receipt Date: 20241017
  Transmission Date: 20250114
  Serious: Yes (Hospitalization, Other)
  Sender: ABBVIE
  Company Number: US-ABBVIE-5961245

PATIENT
  Age: 62 Year
  Sex: Male

DRUGS (2)
  1. UBRELVY [Suspect]
     Active Substance: UBROGEPANT
     Indication: Headache
     Dosage: TAKE ONE TABLET BY MOUTH AS NEEDED. IF NEEDED, 2ND DOSE MAY BE TAKEN 2 HOURS AFTER INITIAL DOSE
     Route: 048
  2. PREDNISONE [Concomitant]
     Active Substance: PREDNISONE
     Indication: Product used for unknown indication
     Dates: start: 20241009

REACTIONS (3)
  - Headache [Unknown]
  - Noninfective encephalitis [Unknown]
  - Amnesia [Unknown]

NARRATIVE: CASE EVENT DATE: 20240905
